FAERS Safety Report 23809098 (Version 1)
Quarter: 2024Q2

REPORT INFORMATION
  Report Type: Spontaneous
  Country: IT (occurrence: IT)
  Receive Date: 20240502
  Receipt Date: 20240502
  Transmission Date: 20240716
  Serious: Yes (Other)
  Sender: FDA-Public Use
  Company Number: IT-PFIZER INC-202400097816

PATIENT
  Sex: Female

DRUGS (4)
  1. OXALIPLATIN [Suspect]
     Active Substance: OXALIPLATIN
     Dosage: DOSE REDUCTION OF OXALIPLATIN FROM THE 6TH CYCLE FOR NEUROTOXITY
     Dates: start: 20200819, end: 20210120
  2. BEVACIZUMAB [Concomitant]
     Active Substance: BEVACIZUMAB
     Dosage: 11 CYCLES OF  FOLFOX_BEVACIZUMAB WITH DOSE REDUCTION OF OXALIPLATIN FROM THE 6TH CYCLE
     Dates: start: 20200819, end: 20210120
  3. LEUCOVORIN [Concomitant]
     Active Substance: LEUCOVORIN\LEUCOVORIN CALCIUM
     Dosage: 11 CYCLES OF  FOLFOX_BEVACIZUMAB WITH DOSE REDUCTION OF OXALIPLATIN FROM THE 6TH CYCLE
     Dates: start: 20200819, end: 20210120
  4. FLUOROURACIL [Concomitant]
     Active Substance: FLUOROURACIL
     Dosage: 11 CYCLES OF  FOLFOX_BEVACIZUMAB WITH DOSE REDUCTION OF OXALIPLATIN FROM THE 6TH CYCLE
     Dates: start: 20200819, end: 20210120

REACTIONS (1)
  - Neurotoxicity [Unknown]
